FAERS Safety Report 19924413 (Version 1)
Quarter: 2021Q4

REPORT INFORMATION
  Report Type: Spontaneous
  Country: GB (occurrence: GB)
  Receive Date: 20211006
  Receipt Date: 20211006
  Transmission Date: 20220303
  Serious: Yes (Other)
  Sender: FDA-Public Use
  Company Number: None

PATIENT
  Age: 79 Year
  Sex: Male

DRUGS (3)
  1. FINASTERIDE [Suspect]
     Active Substance: FINASTERIDE
     Indication: Product used for unknown indication
     Dosage: 5 MILLIGRAM, QD
  2. IRON [Concomitant]
     Active Substance: IRON
     Dosage: UNK
  3. CANNABIDIOL [Concomitant]
     Active Substance: CANNABIDIOL
     Dosage: UNK

REACTIONS (4)
  - Dizziness [Unknown]
  - Balance disorder [Unknown]
  - Fall [Unknown]
  - Condition aggravated [Unknown]
